FAERS Safety Report 14639051 (Version 1)
Quarter: 2018Q1

REPORT INFORMATION
  Report Type: Spontaneous
  Country: US (occurrence: US)
  Receive Date: 20180315
  Receipt Date: 20180315
  Transmission Date: 20180509
  Serious: Yes (Hospitalization, Other)
  Sender: FDA-Public Use
  Company Number: US-AMGEN-USASP2018032727

PATIENT
  Age: 79 Year
  Sex: Female

DRUGS (1)
  1. PROLIA [Suspect]
     Active Substance: DENOSUMAB
     Indication: OSTEOPENIA
     Dosage: UNK, Q6MO
     Route: 065
     Dates: start: 20180131

REACTIONS (7)
  - Dyspnoea [Unknown]
  - Face oedema [Unknown]
  - Hypotension [Unknown]
  - Cardiac failure [Unknown]
  - Throat tightness [Unknown]
  - Respiratory tract oedema [Unknown]
  - Off label use [Unknown]

NARRATIVE: CASE EVENT DATE: 2018
